FAERS Safety Report 23269294 (Version 1)
Quarter: 2023Q4

REPORT INFORMATION
  Report Type: Spontaneous
  Country: CN (occurrence: CN)
  Receive Date: 20231207
  Receipt Date: 20231207
  Transmission Date: 20240109
  Serious: Yes (Other)
  Sender: FDA-Public Use
  Company Number: CN-JNJFOC-20231181374

PATIENT
  Age: 72 Year
  Sex: Male
  Weight: 70 kg

DRUGS (1)
  1. DARZALEX [Suspect]
     Active Substance: DARATUMUMAB
     Indication: Plasma cell myeloma
     Route: 065
     Dates: start: 20230228, end: 20230228

REACTIONS (5)
  - Chills [Recovering/Resolving]
  - Heart rate increased [Recovering/Resolving]
  - Temperature intolerance [Recovering/Resolving]
  - Blood pressure increased [Recovering/Resolving]
  - Infusion related reaction [Recovering/Resolving]

NARRATIVE: CASE EVENT DATE: 20230228
